FAERS Safety Report 11686741 (Version 2)
Quarter: 2015Q4

REPORT INFORMATION
  Report Type: Spontaneous
  Country: TR (occurrence: TR)
  Receive Date: 20151030
  Receipt Date: 20151030
  Transmission Date: 20160304
  Serious: Yes (Hospitalization, Other)
  Sender: FDA-Public Use
  Company Number: TR-HQ SPECIALTY-TR-2015INT000592

PATIENT
  Age: 43 Year
  Sex: Male

DRUGS (4)
  1. IFOSFAMIDE AND MESNA [Suspect]
     Active Substance: IFOSFAMIDE\MESNA
     Indication: SEMINOMA
     Dosage: 1500 MG/M2, ON DAYS 2-5 EVERY 21 DAYS
  2. CISPLATIN. [Suspect]
     Active Substance: CISPLATIN
     Indication: SEMINOMA
     Dosage: 25 MG/M2, ON DAYS 2-5 EVERY 21 DAYS
  3. PACLITAXEL. [Suspect]
     Active Substance: PACLITAXEL
     Indication: SEMINOMA
     Dosage: 250 MG/M2, ON DAY 1 EVERY 21 DAYS
  4. GRANULOCYTE COLONY STIMULATING FACTOR [Concomitant]
     Active Substance: GRANULOCYTE COLONY-STIMULATING FACTOR NOS
     Indication: PROPHYLAXIS
     Dosage: 480 ?G/DAY, ON DAYS 6-12 OF EACH CYCLE
     Route: 058

REACTIONS (12)
  - Aspartate aminotransferase increased [Recovered/Resolved]
  - Febrile neutropenia [Unknown]
  - Blood creatinine increased [Recovered/Resolved]
  - Blood lactate dehydrogenase increased [Recovered/Resolved]
  - Confusional state [Recovered/Resolved]
  - Pyrexia [Recovered/Resolved]
  - Haemolysis [Recovered/Resolved]
  - Thrombotic thrombocytopenic purpura [Recovered/Resolved]
  - Anaemia [Recovered/Resolved]
  - Thrombocytopenia [Recovered/Resolved]
  - Blood bilirubin increased [Recovered/Resolved]
  - Acute kidney injury [Recovered/Resolved]
